FAERS Safety Report 16934163 (Version 3)
Quarter: 2019Q4

REPORT INFORMATION
  Report Type: Spontaneous
  Country: DE (occurrence: DE)
  Receive Date: 20191018
  Receipt Date: 20191219
  Transmission Date: 20200122
  Serious: Yes (Hospitalization, Other)
  Sender: FDA-Public Use
  Company Number: DE-AUROBINDO-AUR-APL-2019-067567

PATIENT
  Age: 47 Year
  Sex: Female

DRUGS (13)
  1. IRINOTECAN [Suspect]
     Active Substance: IRINOTECAN
     Dosage: UNK (THIRD CYCLE)
     Route: 065
     Dates: start: 201904
  2. OXALIPLATIN. [Suspect]
     Active Substance: OXALIPLATIN
     Dosage: UNK, (THIRD CYCLE)
     Route: 065
     Dates: start: 201904
  3. FLUOROURACIL. [Suspect]
     Active Substance: FLUOROURACIL
     Indication: DUCTAL ADENOCARCINOMA OF PANCREAS
     Dosage: UNK, (FIRST CYCLE)
     Route: 065
     Dates: start: 201902
  4. IRINOTECAN [Suspect]
     Active Substance: IRINOTECAN
     Indication: DUCTAL ADENOCARCINOMA OF PANCREAS
     Dosage: UNK (FIRST CYCLE)
     Route: 065
     Dates: start: 201902
  5. LIPEGFILGRASTIM [Suspect]
     Active Substance: LIPEGFILGRASTIM
     Indication: COLONY STIMULATING FACTOR THERAPY
  6. FLUOROURACIL. [Suspect]
     Active Substance: FLUOROURACIL
     Dosage: UNK, (THIRD CYCLE)
     Route: 065
     Dates: start: 201904
  7. OXALIPLATIN. [Suspect]
     Active Substance: OXALIPLATIN
     Dosage: UNK, (12TH CYCLE)
     Route: 065
     Dates: start: 20190716
  8. IRINOTECAN [Suspect]
     Active Substance: IRINOTECAN
     Dosage: UNK (12TH CYCLE)
     Route: 065
     Dates: start: 20190716
  9. OXALIPLATIN. [Suspect]
     Active Substance: OXALIPLATIN
     Indication: DUCTAL ADENOCARCINOMA OF PANCREAS
     Dosage: UNK, (FIRST CYCLE)
     Route: 065
     Dates: start: 201902
  10. FLUOROURACIL. [Suspect]
     Active Substance: FLUOROURACIL
     Dosage: UNK, (12TH CYCLE)
     Route: 065
     Dates: start: 20190716
  11. ENOXAPARIN SODIUM. [Concomitant]
     Active Substance: ENOXAPARIN SODIUM
     Indication: THROMBOCYTOSIS
     Dosage: UNK
     Route: 065
  12. FOLINIC ACID [Concomitant]
     Active Substance: LEUCOVORIN
     Indication: PANCREATIC CARCINOMA
     Dosage: UNK
     Route: 065
     Dates: start: 201902, end: 20190716
  13. LIPEGFILGRASTIM [Suspect]
     Active Substance: LIPEGFILGRASTIM
     Indication: LEUKOPENIA
     Dosage: UNK
     Route: 065
     Dates: start: 201902

REACTIONS (5)
  - Acute coronary syndrome [Recovered/Resolved]
  - Leukocytosis [Recovered/Resolved]
  - Coronary artery occlusion [Recovered/Resolved]
  - Myocardial infarction [Recovered/Resolved]
  - Hyperviscosity syndrome [Recovered/Resolved]

NARRATIVE: CASE EVENT DATE: 201903
